FAERS Safety Report 7007948-2 (Version None)
Quarter: 2010Q3

REPORT INFORMATION
  Report Type: 
  Country: None (occurrence: None)
  Receive Date: 20100922
  Receipt Date: 20100914
  Transmission Date: 20110219
  Serious: Yes (Other)
  Sender: FDA-Public Use
  Company Number: BR-PFIZER INC-2010041950

PATIENT
  Age: 66 Year
  Sex: Female
  Weight: 64 kg

DRUGS (6)
  1. CHAMPIX [Suspect]
     Indication: SMOKING CESSATION THERAPY
     Dosage: UNK
     Route: 048
     Dates: start: 20100325, end: 20100101
  2. CHAMPIX [Suspect]
     Dosage: 1 MG, 2X/DAY (EVERY 12 HOURS)
     Route: 048
     Dates: end: 20100401
  3. ESTRIOL [Concomitant]
     Dosage: UNK
  4. SOMALGIN [Concomitant]
     Dosage: UNK
  5. METFORMIN [Concomitant]
     Indication: DIABETES MELLITUS
     Dosage: UNK
  6. CALCITRIOL [Concomitant]
     Indication: BONE DISORDER
     Dosage: UNK

REACTIONS (3)
  - POISONING [None]
  - RASH PAPULAR [None]
  - VOMITING [None]
